FAERS Safety Report 6855852-2 (Version None)
Quarter: 2010Q3

REPORT INFORMATION
  Report Type: 
  Country: None (occurrence: None)
  Receive Date: 20100719
  Receipt Date: 20100713
  Transmission Date: 20110219
  Serious: Yes (Hospitalization)
  Sender: FDA-Public Use
  Company Number: US-ASTRAZENECA-2007UW14236

PATIENT
  Age: 13272 Day
  Sex: Male
  Weight: 68 kg

DRUGS (11)
  1. SEROQUEL [Suspect]
     Indication: BIPOLAR DISORDER
     Route: 048
     Dates: start: 19990504
  2. SEROQUEL [Suspect]
     Route: 048
     Dates: start: 20041018
  3. SEROQUEL [Suspect]
     Route: 048
     Dates: start: 20060511
  4. HALDOL [Concomitant]
     Dates: start: 19990101
  5. RISPERDAL [Concomitant]
     Indication: BIPOLAR DISORDER
     Route: 048
     Dates: start: 19990101
  6. RISPERDAL [Concomitant]
     Route: 048
     Dates: start: 20060509
  7. RISPERDAL [Concomitant]
     Dates: start: 20041018
  8. BENZTROPINE MESYLATE [Concomitant]
     Route: 048
     Dates: start: 20060511
  9. PROMETHAZINE [Concomitant]
     Route: 048
     Dates: start: 20060408
  10. HYDRCODONE/APAP [Concomitant]
     Dates: start: 20051208
  11. PROTONIX [Concomitant]
     Dates: start: 20041018

REACTIONS (4)
  - ALCOHOLIC PANCREATITIS [None]
  - DIABETES MELLITUS [None]
  - DIABETES WITH HYPEROSMOLARITY [None]
  - PANCREATITIS [None]
